FAERS Safety Report 9782209 (Version 3)
Quarter: 2014Q1

REPORT INFORMATION
  Report Type: Spontaneous
  Country: JP (occurrence: JP)
  Receive Date: 20131226
  Receipt Date: 20140116
  Transmission Date: 20141002
  Serious: Yes (Other)
  Sender: FDA-Public Use
  Company Number: JP-009507513-1312JPN009509

PATIENT
  Age: 43 Year
  Sex: Female

DRUGS (5)
  1. EMEND [Suspect]
     Indication: PROPHYLAXIS OF NAUSEA AND VOMITING
     Dosage: UNK
     Route: 048
  2. PROCHLORPERAZINE MALEATE [Suspect]
     Indication: NAUSEA
     Route: 048
  3. PROCHLORPERAZINE MALEATE [Suspect]
     Indication: VOMITING
  4. OLANZAPINE [Suspect]
     Indication: NAUSEA
     Route: 048
  5. OLANZAPINE [Suspect]
     Indication: VOMITING

REACTIONS (3)
  - Suicidal ideation [Unknown]
  - Akathisia [Unknown]
  - Iron deficiency anaemia [Unknown]
